FAERS Safety Report 6242773-1 (Version None)
Quarter: 2009Q2

REPORT INFORMATION
  Report Type: 
  Country: None (occurrence: None)
  Receive Date: 20090624
  Receipt Date: 20090616
  Transmission Date: 20091009
  Serious: Yes (Other)
  Sender: FDA-Public Use
  Company Number: KR-PFIZER INC-2009229231

PATIENT

DRUGS (1)
  1. SUTENE [Suspect]
     Indication: RENAL CANCER
     Route: 048

REACTIONS (3)
  - ANAL HAEMORRHAGE [None]
  - CONSTIPATION [None]
  - OEDEMA [None]
